FAERS Safety Report 9347180 (Version 1)
Quarter: 2013Q2

REPORT INFORMATION
  Report Type: Spontaneous
  Country: CO (occurrence: CO)
  Receive Date: 20130613
  Receipt Date: 20130613
  Transmission Date: 20140414
  Serious: Yes (Hospitalization, Other)
  Sender: FDA-Public Use
  Company Number: CO-ELI_LILLY_AND_COMPANY-CO201306001666

PATIENT
  Age: 30 Year
  Sex: Female

DRUGS (5)
  1. HUMALOG LISPRO [Suspect]
     Indication: TYPE 1 DIABETES MELLITUS
     Dosage: UNK UNK, PRN
     Route: 058
     Dates: start: 2003
  2. LANTUS [Concomitant]
  3. FLUOXETINE [Concomitant]
  4. ATORVASTATIN [Concomitant]
  5. SODIUM ALGINATE W/SODIUM BICARBONATE [Concomitant]

REACTIONS (5)
  - Oesophageal stenosis [Unknown]
  - Convulsion [Not Recovered/Not Resolved]
  - Hypoglycaemia [Not Recovered/Not Resolved]
  - Vomiting [Not Recovered/Not Resolved]
  - Hypoglycaemia [Unknown]
